FAERS Safety Report 7233902 (Version 5)
Quarter: 2015Q4

REPORT INFORMATION
  Report Type: Spontaneous
  Country: US (occurrence: US)
  Receive Date: 20091230
  Receipt Date: 20151124
  Transmission Date: 20160305
  Serious: Yes (Life-Threatening, Hospitalization, Disabling, Other)
  Sender: FDA-Public Use
  Company Number: US-BAYER-200943645NA

PATIENT
  Age: 31 Year
  Sex: Female
  Weight: 108.84 kg

DRUGS (9)
  1. HYDROCODONE [Concomitant]
     Active Substance: HYDROCODONE
  2. LISINOPRIL. [Concomitant]
     Active Substance: LISINOPRIL
     Indication: BIPOLAR DISORDER
  3. MELOXICAM. [Concomitant]
     Active Substance: MELOXICAM
  4. RISPERDAL [Concomitant]
     Active Substance: RISPERIDONE
     Indication: HYPERTENSION
  5. YAZ [Suspect]
     Active Substance: DROSPIRENONE\ETHINYL ESTRADIOL
     Indication: CONTRACEPTION
     Dosage: UNK
     Route: 048
     Dates: start: 200612, end: 200701
  6. SULFAMETHOXAZOLE [Concomitant]
     Active Substance: SULFAMETHOXAZOLE
     Dosage: 800
     Route: 048
  7. TRIMETHOPRIM. [Concomitant]
     Active Substance: TRIMETHOPRIM
     Dosage: 160
     Route: 048
  8. CIPROFLOXACIN. [Concomitant]
     Active Substance: CIPROFLOXACIN
     Dosage: 500 MG, UNK
     Route: 048
  9. DEXAMETHASONE. [Concomitant]
     Active Substance: DEXAMETHASONE

REACTIONS (8)
  - Mental disorder [None]
  - Gangrene [Unknown]
  - Deep vein thrombosis [Unknown]
  - Peripheral ischaemia [None]
  - Peripheral embolism [None]
  - Pain [Unknown]
  - Embolism arterial [None]
  - Hypoaesthesia [None]

NARRATIVE: CASE EVENT DATE: 200701
